FAERS Safety Report 10546262 (Version 1)
Quarter: 2014Q4

REPORT INFORMATION
  Report Type: Spontaneous
  Country: US (occurrence: US)
  Receive Date: 20141027
  Receipt Date: 20141027
  Transmission Date: 20150529
  Serious: No
  Sender: FDA-Public Use
  Company Number: US-ABBVIE-14P-163-1230576-00

PATIENT
  Age: 36 Year
  Sex: Female
  Weight: 122.58 kg

DRUGS (3)
  1. LUPRON DEPOT [Suspect]
     Active Substance: LEUPROLIDE ACETATE
     Indication: ENDOMETRIOSIS
     Route: 030
     Dates: start: 20140314, end: 20140314
  2. LUPRON DEPOT [Suspect]
     Active Substance: LEUPROLIDE ACETATE
     Route: 030
     Dates: start: 20140425
  3. NORETHINDRONE. [Concomitant]
     Active Substance: NORETHINDRONE
     Indication: HORMONE REPLACEMENT THERAPY

REACTIONS (4)
  - Depression [Unknown]
  - Mood swings [Unknown]
  - Memory impairment [Unknown]
  - Hot flush [Unknown]

NARRATIVE: CASE EVENT DATE: 201404
